FAERS Safety Report 11165536 (Version 2)
Quarter: 2015Q2

REPORT INFORMATION
  Report Type: Spontaneous
  Country: US (occurrence: US)
  Receive Date: 20150604
  Receipt Date: 20150618
  Transmission Date: 20150821
  Serious: Yes (Death)
  Sender: FDA-Public Use
  Company Number: US-JNJFOC-20150602487

PATIENT
  Age: 72 Year
  Sex: Male
  Weight: 113 kg

DRUGS (14)
  1. IMBRUVICA [Suspect]
     Active Substance: IBRUTINIB
     Indication: CHRONIC LYMPHOCYTIC LEUKAEMIA
     Route: 048
     Dates: start: 20150413
  2. ALLOPURINOL. [Concomitant]
     Active Substance: ALLOPURINOL
     Route: 048
  3. SLOW MAG [Concomitant]
     Active Substance: MAGNESIUM CHLORIDE
  4. LOVENOX [Concomitant]
     Active Substance: ENOXAPARIN SODIUM
     Dates: start: 20150223
  5. IPILIMUMAB [Concomitant]
     Active Substance: IPILIMUMAB
     Indication: MALIGNANT MELANOMA
  6. EPLERENONE. [Concomitant]
     Active Substance: EPLERENONE
     Route: 048
  7. METOPROLOL [Concomitant]
     Active Substance: METOPROLOL
     Route: 048
  8. SIMVASTATIN. [Concomitant]
     Active Substance: SIMVASTATIN
     Dosage: QHS
     Route: 048
  9. RAMIPRIL. [Concomitant]
     Active Substance: RAMIPRIL
     Route: 048
  10. ASA [Concomitant]
     Active Substance: ASPIRIN
     Route: 048
  11. CHLORTHALIDONE. [Concomitant]
     Active Substance: CHLORTHALIDONE
     Route: 048
  12. METAMUCIL [Concomitant]
     Active Substance: PLANTAGO SEED
  13. AMLODIPINE [Concomitant]
     Active Substance: AMLODIPINE BESYLATE
     Route: 048
  14. LEVOTHYROXINE [Concomitant]
     Active Substance: LEVOTHYROXINE
     Dosage: 50 UNKNOWN

REACTIONS (8)
  - Hypothyroidism [Not Recovered/Not Resolved]
  - Prescribed underdose [Unknown]
  - Metastatic malignant melanoma [Fatal]
  - Pleural effusion [Unknown]
  - Epistaxis [Unknown]
  - Contusion [Unknown]
  - Body mass index decreased [Not Recovered/Not Resolved]
  - Ascites [Not Recovered/Not Resolved]

NARRATIVE: CASE EVENT DATE: 20150413
